FAERS Safety Report 23348995 (Version 1)
Quarter: 2023Q4

REPORT INFORMATION
  Report Type: Spontaneous
  Country: CA (occurrence: CA)
  Receive Date: 20231229
  Receipt Date: 20231229
  Transmission Date: 20240109
  Serious: Yes (Death, Other)
  Sender: FDA-Public Use
  Company Number: CA-ALKEM LABORATORIES LIMITED-CA-ALKEM-2023-16498

PATIENT
  Age: 28 Year
  Sex: Male

DRUGS (1)
  1. COLCHICINE [Suspect]
     Active Substance: COLCHICINE
     Indication: Product used for unknown indication
     Dosage: 750 MILLIGRAM, POWDER
     Route: 065

REACTIONS (5)
  - Renal failure [Fatal]
  - Coagulopathy [Fatal]
  - Hepatocellular injury [Fatal]
  - Overdose [Fatal]
  - Nausea [Unknown]
